FAERS Safety Report 26070014 (Version 1)
Quarter: 2025Q4

REPORT INFORMATION
  Report Type: Spontaneous
  Country: US (occurrence: None)
  Receive Date: 20251119
  Receipt Date: 20251119
  Transmission Date: 20260118
  Serious: No
  Sender: FDA-CTU
  Company Number: None

PATIENT
  Age: 82 Year
  Sex: Female

DRUGS (1)
  1. JAKAFI [Suspect]
     Active Substance: RUXOLITINIB
     Dosage: FREQUENCY : TWICE A DAY;?
     Route: 048

REACTIONS (7)
  - Palpitations [None]
  - Palpitations [None]
  - Urinary tract infection [None]
  - Pneumonia [None]
  - Blood pressure increased [None]
  - Immunodeficiency [None]
  - Infection susceptibility increased [None]

NARRATIVE: CASE EVENT DATE: 20251119
